FAERS Safety Report 15462118 (Version 2)
Quarter: 2018Q4

REPORT INFORMATION
  Report Type: Spontaneous
  Country: US (occurrence: US)
  Receive Date: 20181004
  Receipt Date: 20181019
  Transmission Date: 20190204
  Serious: Yes (Death, Other)
  Sender: FDA-Public Use
  Company Number: US-B.I. PHARMACEUTICALS,INC./RIDGEFIELD-2018-BI-048961

PATIENT
  Sex: Male

DRUGS (1)
  1. PRADAXA [Suspect]
     Active Substance: DABIGATRAN ETEXILATE MESYLATE
     Indication: ATRIAL FIBRILLATION
     Dosage: FORM STRENGTH: 150 MG; FORMULATION: CAPSULE ACTION(S) TAKEN: NOT REPORTED
     Route: 048

REACTIONS (4)
  - Chronic obstructive pulmonary disease [Fatal]
  - Cardiac failure [Fatal]
  - Coronary artery disease [Fatal]
  - Malignant neoplasm progression [Fatal]
